FAERS Safety Report 5716342-3 (Version None)
Quarter: 2008Q2

REPORT INFORMATION
  Report Type: 
  Country: None (occurrence: None)
  Receive Date: 20080416
  Receipt Date: 20080213
  Transmission Date: 20081010
  Serious: Yes (Hospitalization)
  Sender: FDA-Public Use
  Company Number: PHEH2008US01834

PATIENT
  Sex: Female

DRUGS (20)
  1. FORADIL [Suspect]
     Indication: CHRONIC OBSTRUCTIVE PULMONARY DISEASE
     Dosage: INHALATION ; INHALATION
     Route: 055
     Dates: end: 20071113
  2. FORADIL [Suspect]
     Indication: CHRONIC OBSTRUCTIVE PULMONARY DISEASE
     Dosage: INHALATION ; INHALATION
     Route: 055
     Dates: start: 20080114
  3. XOPENEX [Suspect]
     Indication: CHRONIC OBSTRUCTIVE PULMONARY DISEASE
     Dosage: 1.25MG/3ML TID,INHALATION ; 1.25MG/3ML TID, INHALATION
     Route: 055
     Dates: end: 20071113
  4. XOPENEX [Suspect]
     Indication: CHRONIC OBSTRUCTIVE PULMONARY DISEASE
     Dosage: 1.25MG/3ML TID,INHALATION ; 1.25MG/3ML TID, INHALATION
     Route: 055
     Dates: start: 20080114
  5. ALBUTEROL [Concomitant]
  6. FOSAMAX [Concomitant]
  7. ASCORBIC ACID [Concomitant]
  8. SPIRIVA [Concomitant]
  9. SINEMET [Concomitant]
  10. NITROSTAT [Concomitant]
  11. NITROFURANTOIN [Concomitant]
  12. LYRICA [Concomitant]
  13. LIPITOR /NET/ (ATORVASTATIN CALCIUM) [Concomitant]
  14. HYDROCODONE (HYDROCODONE) [Concomitant]
  15. CARDIZEM [Concomitant]
  16. UNIVASC [Concomitant]
  17. SINGULAIR [Concomitant]
  18. RHINOCORT [Concomitant]
  19. PULMICORT [Concomitant]
  20. DITROPAN [Concomitant]

REACTIONS (2)
  - DYSPNOEA [None]
  - PNEUMONIA [None]
